FAERS Safety Report 17571997 (Version 1)
Quarter: 2020Q1

REPORT INFORMATION
  Report Type: Spontaneous
  Country: US (occurrence: US)
  Receive Date: 20200321
  Receipt Date: 20200321
  Transmission Date: 20200409
  Serious: Yes (Other)
  Sender: FDA-Public Use
  Company Number: None

PATIENT
  Age: 29 Year
  Sex: Female

DRUGS (1)
  1. LEVAQUIN [Suspect]
     Active Substance: LEVOFLOXACIN

REACTIONS (14)
  - Muscle twitching [None]
  - Gastrooesophageal reflux disease [None]
  - Depression [None]
  - Near death experience [None]
  - Nerve injury [None]
  - Memory impairment [None]
  - Blood glucose decreased [None]
  - Anxiety [None]
  - Flushing [None]
  - Mental disorder [None]
  - Confusional state [None]
  - Loss of consciousness [None]
  - Migraine [None]
  - Photopsia [None]

NARRATIVE: CASE EVENT DATE: 20120701
